FAERS Safety Report 5983505-1 (Version None)
Quarter: 2008Q4

REPORT INFORMATION
  Report Type: 
  Country: None (occurrence: None)
  Receive Date: 20081208
  Receipt Date: 20081128
  Transmission Date: 20090506
  Serious: Yes (Other)
  Sender: FDA-Public Use
  Company Number: DE-JNJFOC-20081200602

PATIENT
  Age: 64 Year
  Sex: Male
  Weight: 85 kg

DRUGS (3)
  1. REMICADE [Suspect]
     Indication: SPONDYLITIS
     Route: 042
  2. ENBREL [Suspect]
     Indication: SPONDYLITIS
  3. METHOTREXATE [Concomitant]
     Indication: SPONDYLITIS

REACTIONS (3)
  - ANXIETY [None]
  - PERSONALITY CHANGE [None]
  - TREMOR [None]
